FAERS Safety Report 20945917 (Version 1)
Quarter: 2022Q2

REPORT INFORMATION
  Report Type: Spontaneous
  Country: US (occurrence: US)
  Receive Date: 20220610
  Receipt Date: 20220610
  Transmission Date: 20220721
  Serious: No
  Sender: FDA-Public Use
  Company Number: US-BIOVITRUM-2022US07654

PATIENT
  Age: 0 Year
  Sex: Female

DRUGS (1)
  1. SYNAGIS [Suspect]
     Active Substance: PALIVIZUMAB
     Indication: Cytogenetic abnormality
     Route: 030
     Dates: start: 202012

REACTIONS (3)
  - Illness [Unknown]
  - Product dose omission issue [Unknown]
  - Off label use [Not Recovered/Not Resolved]

NARRATIVE: CASE EVENT DATE: 20201201
